FAERS Safety Report 14669770 (Version 1)
Quarter: 2018Q1

REPORT INFORMATION
  Report Type: Spontaneous
  Country: US (occurrence: US)
  Receive Date: 20180322
  Receipt Date: 20180322
  Transmission Date: 20180509
  Serious: No
  Sender: FDA-Public Use
  Company Number: US-GLAXOSMITHKLINE-US2018046818

PATIENT
  Age: 69 Year
  Sex: Female

DRUGS (3)
  1. ADVAIR DISKUS [Suspect]
     Active Substance: FLUTICASONE PROPIONATE\SALMETEROL XINAFOATE
     Indication: DYSPNOEA
     Dosage: 1 PUFF(S), QD
     Route: 055
     Dates: start: 20180307
  2. SPIRIVA [Concomitant]
     Active Substance: TIOTROPIUM BROMIDE MONOHYDRATE
  3. ANTIHISTAMINE OTC [Concomitant]

REACTIONS (7)
  - Sneezing [Not Recovered/Not Resolved]
  - Drug ineffective [Recovering/Resolving]
  - Aphonia [Not Recovered/Not Resolved]
  - Expired product administered [Unknown]
  - Underdose [Unknown]
  - Rhinorrhoea [Not Recovered/Not Resolved]
  - Drug dispensing error [Unknown]

NARRATIVE: CASE EVENT DATE: 201803
